FAERS Safety Report 18636142 (Version 1)
Quarter: 2020Q4

REPORT INFORMATION
  Report Type: Spontaneous
  Country: US (occurrence: US)
  Receive Date: 20201218
  Receipt Date: 20201218
  Transmission Date: 20210114
  Serious: No
  Sender: FDA-Public Use
  Company Number: US-REGENERON PHARMACEUTICALS, INC.-2020-33016

PATIENT

DRUGS (1)
  1. EYLEA [Suspect]
     Active Substance: AFLIBERCEPT
     Indication: MACULAR DEGENERATION
     Dosage: IN THE LEFT EYE, EVERY 7 WEEKS
     Route: 031
     Dates: start: 20200311

REACTIONS (6)
  - Lacrimation increased [Unknown]
  - Visual impairment [Unknown]
  - Periorbital swelling [Unknown]
  - Blood pressure increased [Unknown]
  - Vitreous floaters [Unknown]
  - Abnormal sensation in eye [Recovered/Resolved]

NARRATIVE: CASE EVENT DATE: 2020
